FAERS Safety Report 20989111 (Version 1)
Quarter: 2022Q2

REPORT INFORMATION
  Report Type: Spontaneous
  Country: US (occurrence: US)
  Receive Date: 20220621
  Receipt Date: 20220621
  Transmission Date: 20220721
  Serious: No
  Sender: FDA-Public Use
  Company Number: US-SCYNEXIS, INC.-2022SCY000026

PATIENT
  Age: 34 Year
  Sex: Female

DRUGS (1)
  1. BREXAFEMME [Suspect]
     Active Substance: IBREXAFUNGERP CITRATE
     Indication: Vulvovaginal mycotic infection
     Dosage: UNK
     Route: 048

REACTIONS (1)
  - Condition aggravated [Recovering/Resolving]
